FAERS Safety Report 7306671 (Version 8)
Quarter: 2025Q2

REPORT INFORMATION
  Report Type: Spontaneous
  Country: FR (occurrence: FR)
  Receive Date: 20100305
  Receipt Date: 20250422
  Transmission Date: 20250716
  Serious: Yes (Death, Life-Threatening, Hospitalization, Other)
  Sender: SANOFI AVENTIS
  Company Number: FR-SANOFI-AVENTIS-2010SA012042

PATIENT
  Age: 64 Year
  Sex: Female

DRUGS (9)
  1. ARAVA [Suspect]
     Active Substance: LEFLUNOMIDE
     Indication: Rheumatoid arthritis
     Dosage: 20 MG,QD
     Route: 048
     Dates: start: 20090312, end: 20090415
  2. ARAVA [Suspect]
     Active Substance: LEFLUNOMIDE
     Indication: Psoriatic arthropathy
  3. NAPROXEN SODIUM [Suspect]
     Active Substance: NAPROXEN SODIUM
     Indication: Psoriatic arthropathy
     Dosage: 1100 MG, QD
     Route: 048
     Dates: start: 200809, end: 20090415
  4. PREDNISONE [Concomitant]
     Active Substance: PREDNISONE
     Dosage: 5 MG,QD
     Route: 048
     Dates: start: 2007, end: 2010
  5. METHOTREXATE [Concomitant]
     Active Substance: METHOTREXATE
     Indication: Psoriatic arthropathy
     Dosage: 15 MG, QW
     Route: 048
     Dates: start: 200809
  6. ACETAMINOPHEN\PROPOXYPHENE HYDROCHLORIDE [Concomitant]
     Active Substance: ACETAMINOPHEN\PROPOXYPHENE HYDROCHLORIDE
     Dates: end: 2010
  7. OMEPRAZOLE [Concomitant]
     Active Substance: OMEPRAZOLE
     Dosage: 20 MG,QD
     Route: 048
     Dates: start: 20090312, end: 2010
  8. INDAPAMIDE\PERINDOPRIL ARGININE [Concomitant]
     Active Substance: INDAPAMIDE\PERINDOPRIL ARGININE
     Indication: Hypertension
     Route: 048
     Dates: end: 2010
  9. NAPROXEN [Concomitant]
     Active Substance: NAPROXEN
     Dates: start: 2007

REACTIONS (24)
  - Abdominal pain upper [Fatal]
  - Altered state of consciousness [Fatal]
  - Dehydration [Fatal]
  - Diarrhoea [Fatal]
  - Drug reaction with eosinophilia and systemic symptoms [Fatal]
  - Face oedema [Fatal]
  - Gastritis [Fatal]
  - Gastrointestinal haemorrhage [Fatal]
  - Haemodynamic instability [Fatal]
  - Haemophagocytic lymphohistiocytosis [Fatal]
  - Large intestine infection [Fatal]
  - Malnutrition [Fatal]
  - Oesophagitis [Fatal]
  - Renal failure [Fatal]
  - Rash [Fatal]
  - Vomiting [Fatal]
  - Visual acuity reduced [Fatal]
  - Colitis [Fatal]
  - Liver injury [Fatal]
  - Necrotising oesophagitis [Fatal]
  - Pneumonia [Fatal]
  - Eosinophil count increased [Fatal]
  - Tonsillitis [Fatal]
  - Multiple organ dysfunction syndrome [Fatal]

NARRATIVE: CASE EVENT DATE: 20090401
